FAERS Safety Report 21898688 (Version 3)
Quarter: 2023Q1

REPORT INFORMATION
  Report Type: Spontaneous
  Country: US (occurrence: None)
  Receive Date: 20230123
  Receipt Date: 20230320
  Transmission Date: 20230417
  Serious: No
  Sender: FDA-Public Use
  Company Number: 2023A015760

PATIENT
  Age: 516 Day
  Sex: Female

DRUGS (2)
  1. SYMBICORT [Suspect]
     Active Substance: BUDESONIDE\FORMOTEROL FUMARATE DIHYDRATE
     Indication: Aspiration
     Dosage: 80/4.5 MCG 2 PUFFS TWICE A DAY
     Route: 055
  2. SYMBICORT [Suspect]
     Active Substance: BUDESONIDE\FORMOTEROL FUMARATE DIHYDRATE
     Indication: Cough
     Dosage: 80/4.5 MCG 2 PUFFS TWICE A DAY
     Route: 055

REACTIONS (5)
  - Cough [Unknown]
  - Device malfunction [Unknown]
  - Off label use [Unknown]
  - Wrong technique in device usage process [Unknown]
  - Drug dose omission by device [Unknown]

NARRATIVE: CASE EVENT DATE: 20230116
